FAERS Safety Report 13948200 (Version 1)
Quarter: 2017Q3

REPORT INFORMATION
  Report Type: Spontaneous
  Country: US (occurrence: None)
  Receive Date: 20170907
  Receipt Date: 20170907
  Transmission Date: 20171128
  Serious: Yes (Hospitalization, Other)
  Sender: FDA-Public Use
  Company Number: None

PATIENT
  Age: 26 Year
  Sex: Female
  Weight: 68.95 kg

DRUGS (4)
  1. PHENERGAN [Concomitant]
     Active Substance: PROMETHAZINE HYDROCHLORIDE
  2. IBROPRFEN [Concomitant]
  3. NEXPLANON [Suspect]
     Active Substance: ETONOGESTREL
  4. HYDROXZINE/VISTRAIL [Concomitant]

REACTIONS (8)
  - Nausea [None]
  - Vomiting [None]
  - Abdominal pain [None]
  - Migraine [None]
  - Muscle spasms [None]
  - Drug ineffective [None]
  - Vision blurred [None]
  - Asthenia [None]
